FAERS Safety Report 7286586-0 (Version None)
Quarter: 2011Q1

REPORT INFORMATION
  Report Type: 
  Country: None (occurrence: None)
  Receive Date: 20110210
  Receipt Date: 20110202
  Transmission Date: 20110831
  Serious: Yes (Hospitalization)
  Sender: FDA-Public Use
  Company Number: US-MPIJNJ-2011-00483

PATIENT
  Sex: Female
  Weight: 75.283 kg

DRUGS (6)
  1. RITUXIMAB [Suspect]
     Dosage: 697 MG, CYCLIC
     Route: 042
     Dates: start: 20110117, end: 20110131
  2. BENDAMUSTINE [Suspect]
     Indication: LYMPHOMA
  3. BENDAMUSTINE [Suspect]
     Dosage: 170 MG, CYCLIC
     Route: 042
     Dates: start: 20110117, end: 20110118
  4. RITUXIMAB [Suspect]
     Indication: LYMPHOMA
  5. VELCADE [Suspect]
     Dosage: 2.5 MG, CYCLIC
     Route: 042
     Dates: start: 20110117, end: 20110131
  6. VELCADE [Suspect]
     Indication: LYMPHOMA

REACTIONS (1)
  - INTESTINAL PERFORATION [None]
